FAERS Safety Report 8364480-1 (Version None)
Quarter: 2012Q2

REPORT INFORMATION
  Report Type: 
  Country: None (occurrence: None)
  Receive Date: 20120516
  Receipt Date: 20120511
  Transmission Date: 20120825
  Serious: Yes (Hospitalization)
  Sender: FDA-Public Use
  Company Number: US-BAYER-2012-047286

PATIENT
  Age: 20 Year
  Sex: Female
  Weight: 73 kg

DRUGS (4)
  1. DOXYCYCLINE [Concomitant]
     Dosage: UNK
     Dates: start: 20040723
  2. YASMIN [Suspect]
  3. SARAFEM [Concomitant]
  4. ADAPALENE [Concomitant]
     Dosage: UNK
     Dates: start: 20040723

REACTIONS (1)
  - PULMONARY EMBOLISM [None]
